FAERS Safety Report 12728634 (Version 1)
Quarter: 2016Q3

REPORT INFORMATION
  Report Type: Spontaneous
  Country: US (occurrence: US)
  Receive Date: 20160909
  Receipt Date: 20160909
  Transmission Date: 20161109
  Serious: Yes (Hospitalization)
  Sender: FDA-Public Use
  Company Number: US-NOVOPROD-508595

PATIENT
  Age: 53 Year
  Sex: Female
  Weight: 118.82 kg

DRUGS (1)
  1. VICTOZA [Suspect]
     Active Substance: LIRAGLUTIDE
     Indication: TYPE 2 DIABETES MELLITUS
     Dosage: 1.8 MG, QD
     Route: 058
     Dates: start: 2015, end: 201608

REACTIONS (2)
  - Metastases to liver [Not Recovered/Not Resolved]
  - Solid pseudopapillary tumour of the pancreas [Not Recovered/Not Resolved]

NARRATIVE: CASE EVENT DATE: 201608
